FAERS Safety Report 5347813-X (Version None)
Quarter: 2007Q2

REPORT INFORMATION
  Report Type: 
  Country: None (occurrence: None)
  Receive Date: 20070516
  Receipt Date: 20060509
  Transmission Date: 20071010
  Serious: Yes (Hospitalization)
  Sender: FDA-Public Use
  Company Number: E2090-00002-SPO-US

PATIENT
  Age: 53 Year
  Sex: Male
  Weight: 91 kg

DRUGS (1)
  1. ZONEGRAN [Suspect]
     Indication: HEAD INJURY
     Dosage: 400 MG, 4 IN 1 D, ORAL
     Route: 048
     Dates: start: 20040101

REACTIONS (1)
  - CONVULSION [None]
